FAERS Safety Report 24340195 (Version 1)
Quarter: 2024Q3

REPORT INFORMATION
  Report Type: Spontaneous
  Country: CN (occurrence: CN)
  Receive Date: 20240919
  Receipt Date: 20240919
  Transmission Date: 20241017
  Serious: Yes (Other)
  Sender: INCYTE
  Company Number: CN-002147023-NVSC2024CN185373

PATIENT

DRUGS (1)
  1. RUXOLITINIB [Suspect]
     Active Substance: RUXOLITINIB
     Indication: Acute graft versus host disease
     Dosage: 2.5 MG, BID
     Route: 065

REACTIONS (3)
  - Therapy non-responder [Unknown]
  - Neutropenia [Unknown]
  - Product use issue [Unknown]
